FAERS Safety Report 13079098 (Version 1)
Quarter: 2017Q1

REPORT INFORMATION
  Report Type: Spontaneous
  Country: SE (occurrence: SE)
  Receive Date: 20170102
  Receipt Date: 20170102
  Transmission Date: 20170428
  Serious: Yes (Hospitalization)
  Sender: FDA-Public Use
  Company Number: SE-CONCORDIA PHARMACEUTICALS INC.-GSH201612-006572

PATIENT
  Age: 78 Year
  Sex: Female

DRUGS (2)
  1. DIGOXIN. [Suspect]
     Active Substance: DIGOXIN
  2. ATENOLOL. [Suspect]
     Active Substance: ATENOLOL

REACTIONS (3)
  - Cachexia [Not Recovered/Not Resolved]
  - Bradycardia [Not Recovered/Not Resolved]
  - Nausea [Not Recovered/Not Resolved]
